FAERS Safety Report 23300043 (Version 2)
Quarter: 2023Q4

REPORT INFORMATION
  Report Type: Report from Study
  Country: DE (occurrence: DE)
  Receive Date: 20231215
  Receipt Date: 20231228
  Transmission Date: 20240109
  Serious: Yes (Death)
  Sender: FDA-Public Use
  Company Number: DE-ABBVIE-5535246

PATIENT
  Age: 79 Year
  Sex: Male

DRUGS (2)
  1. CARBIDOPA\LEVODOPA [Suspect]
     Active Substance: CARBIDOPA\LEVODOPA
     Indication: Parkinson^s disease
     Dosage: MD: 4.0ML; CRD: 3.1ML/H; AFTERNOON: 2.8ML; ED: 1.0ML
     Route: 050
     Dates: start: 20060110
  2. CARBIDOPA\LEVODOPA [Suspect]
     Active Substance: CARBIDOPA\LEVODOPA

REACTIONS (4)
  - Dyspnoea [Fatal]
  - Increased bronchial secretion [Fatal]
  - Feeding tube user [Not Recovered/Not Resolved]
  - Device material issue [Unknown]

NARRATIVE: CASE EVENT DATE: 20231210
